FAERS Safety Report 5038871-0 (Version None)
Quarter: 2006Q2

REPORT INFORMATION
  Report Type: 
  Country: None (occurrence: None)
  Receive Date: 20060628
  Receipt Date: 20060628
  Transmission Date: 20061013
  Serious: Yes (Hospitalization)
  Sender: FDA-Public Use
  Company Number: None

PATIENT
  Age: 87 Year
  Sex: Female

DRUGS (1)
  1. PLAVIX [Suspect]
     Dosage: 75 MG DAILY PO
     Route: 048
     Dates: end: 20060620

REACTIONS (2)
  - BASAL CELL CARCINOMA [None]
  - INCISION SITE HAEMORRHAGE [None]
